FAERS Safety Report 8189667-2 (Version None)
Quarter: 2012Q1

REPORT INFORMATION
  Report Type: 
  Country: None (occurrence: None)
  Receive Date: 20120221
  Receipt Date: 20120119
  Transmission Date: 20120608
  Serious: No
  Sender: FDA-Public Use
  Company Number: 050042

PATIENT
  Sex: Male
  Weight: 74.8 kg

DRUGS (3)
  1. PHENYTOIN [Concomitant]
  2. KEPPRA [Concomitant]
  3. LACOSAMIDE [Suspect]
     Indication: CONVULSION
     Dosage: (200 MG BID, 10AM AND 10 PM ORAL)
     Route: 048
     Dates: start: 20110901

REACTIONS (1)
  - SKIN DISCOLOURATION [None]
